FAERS Safety Report 9353477 (Version 1)
Quarter: 2013Q2

REPORT INFORMATION
  Report Type: Spontaneous
  Country: US (occurrence: US)
  Receive Date: 20130618
  Receipt Date: 20130618
  Transmission Date: 20140414
  Serious: No
  Sender: FDA-Public Use
  Company Number: US-MYLANLABS-2013S1004974

PATIENT
  Age: 85 Year
  Sex: Female

DRUGS (1)
  1. TOLTERODINE TARTRATE [Suspect]

REACTIONS (1)
  - Constipation [Not Recovered/Not Resolved]
